FAERS Safety Report 8310188-8 (Version None)
Quarter: 2012Q2

REPORT INFORMATION
  Report Type: 
  Country: None (occurrence: None)
  Receive Date: 20120425
  Receipt Date: 20120418
  Transmission Date: 20120825
  Serious: Yes (Other)
  Sender: FDA-Public Use
  Company Number: US-SANOFI-AVENTIS-2011SA031234

PATIENT
  Age: 77 Year
  Sex: Female
  Weight: 111.36 kg

DRUGS (3)
  1. CELEBREX [Concomitant]
  2. IODINE [Concomitant]
  3. MULTAQ [Suspect]
     Indication: ATRIAL FIBRILLATION
     Route: 048
     Dates: start: 20090115

REACTIONS (8)
  - MEDICATION RESIDUE [None]
  - HAEMATOCHEZIA [None]
  - MUSCLE SPASMS [None]
  - PULMONARY HYPERTENSION [None]
  - DIARRHOEA [None]
  - URINARY TRACT INFECTION [None]
  - ATRIAL FIBRILLATION [None]
  - UPPER RESPIRATORY TRACT INFECTION [None]
